FAERS Safety Report 23551008 (Version 1)
Quarter: 2024Q1

REPORT INFORMATION
  Report Type: Spontaneous
  Country: FR (occurrence: None)
  Receive Date: 20240222
  Receipt Date: 20240222
  Transmission Date: 20240410
  Serious: Yes (Hospitalization)
  Sender: FDA-Public Use
  Company Number: 2024A039157

PATIENT
  Age: 71 Year
  Sex: Female
  Weight: 100 kg

DRUGS (18)
  1. DAPAGLIFLOZIN [Suspect]
     Active Substance: DAPAGLIFLOZIN
     Indication: Dilated cardiomyopathy
     Dosage: LONG COURS
     Route: 048
     Dates: end: 20231010
  2. DAPAGLIFLOZIN [Suspect]
     Active Substance: DAPAGLIFLOZIN
     Indication: Dilated cardiomyopathy
     Dosage: LONG COURS
     Route: 048
     Dates: end: 20231010
  3. BACTRIM [Suspect]
     Active Substance: SULFAMETHOXAZOLE\TRIMETHOPRIM
     Indication: Pneumocystis jirovecii pneumonia
     Route: 048
     Dates: start: 20231004, end: 20231011
  4. BACTRIM [Suspect]
     Active Substance: SULFAMETHOXAZOLE\TRIMETHOPRIM
     Indication: Pneumocystis jirovecii pneumonia
     Route: 040
     Dates: start: 20230924, end: 20231003
  5. ENTRESTO [Suspect]
     Active Substance: SACUBITRIL\VALSARTAN
     Indication: Cardiomyopathy
     Dosage: 2 CP/J AU LONG COURS2.0DF UNKNOWN
  6. METHOTREXATE [Suspect]
     Active Substance: METHOTREXATE
     Indication: Rheumatoid arthritis
     Dosage: LONG COURS
     Route: 048
     Dates: end: 20231010
  7. FOLIC ACID [Concomitant]
     Active Substance: FOLIC ACID
  8. PREDNISONE [Concomitant]
     Active Substance: PREDNISONE
  9. LEUCOVORIN CALCIUM [Concomitant]
     Active Substance: LEUCOVORIN CALCIUM
  10. OMEPRAZOLE [Concomitant]
     Active Substance: OMEPRAZOLE
  11. OXAZEPAM [Concomitant]
     Active Substance: OXAZEPAM
  12. PREDNISONE [Concomitant]
     Active Substance: PREDNISONE
  13. LEVOTHYROXINE [Concomitant]
     Active Substance: LEVOTHYROXINE\LEVOTHYROXINE SODIUM
  14. PAROXETINE HYDROCHLORIDE [Concomitant]
     Active Substance: PAROXETINE HYDROCHLORIDE\PAROXETINE HYDROCHLORIDE ANHYDROUS
  15. SOLUPRED [Concomitant]
  16. RISPERIDONE [Concomitant]
     Active Substance: RISPERIDONE
  17. CARVEDILOL [Concomitant]
     Active Substance: CARVEDILOL
  18. CHOLECALCIFEROL [Concomitant]
     Active Substance: CHOLECALCIFEROL

REACTIONS (2)
  - Thrombocytopenia [Recovered/Resolved]
  - Renal failure [Recovered/Resolved]

NARRATIVE: CASE EVENT DATE: 20231010
